FAERS Safety Report 9435888 (Version 1)
Quarter: 2013Q3

REPORT INFORMATION
  Report Type: Other
  Country: US (occurrence: US)
  Receive Date: 20130801
  Receipt Date: 20130801
  Transmission Date: 20140515
  Serious: Yes (Hospitalization)
  Sender: FDA-Public Use
  Company Number: US-BRISTOL-MYERS SQUIBB COMPANY-19130327

PATIENT
  Age: 75 Year
  Sex: Male

DRUGS (8)
  1. WARFARIN SODIUM [Suspect]
  2. CLOPIDOGREL BISULFATE [Suspect]
  3. METOPROLOL [Concomitant]
  4. LISINOPRIL [Concomitant]
  5. HYDROCHLOROTHIAZIDE [Concomitant]
  6. DOXAZOSIN [Concomitant]
  7. DIGOXIN [Concomitant]
  8. SIMVASTATIN [Concomitant]

REACTIONS (1)
  - Compartment syndrome [Unknown]
